FAERS Safety Report 6779930-1 (Version None)
Quarter: 2010Q2

REPORT INFORMATION
  Report Type: 
  Country: None (occurrence: None)
  Receive Date: 20100618
  Receipt Date: 20100614
  Transmission Date: 20101027
  Serious: Yes (Other)
  Sender: FDA-Public Use
  Company Number: JP-EISAI INC.-E2020-06705-SPO-JP

PATIENT
  Age: 84 Year
  Sex: Female

DRUGS (8)
  1. ARICEPT [Suspect]
     Indication: DEMENTIA ALZHEIMER'S TYPE
     Route: 048
     Dates: start: 20100212, end: 20100225
  2. ARICEPT [Suspect]
     Route: 048
     Dates: start: 20100226
  3. AMLODIPINE [Concomitant]
     Route: 048
  4. DIOVAN [Concomitant]
     Route: 048
  5. FLUITRAN [Concomitant]
     Route: 048
  6. ASPIRIN [Concomitant]
     Route: 048
  7. RHYTHMY [Concomitant]
     Route: 048
  8. MICTONORM [Concomitant]
     Route: 048

REACTIONS (1)
  - PANCYTOPENIA [None]
